FAERS Safety Report 8252234-6 (Version None)
Quarter: 2012Q2

REPORT INFORMATION
  Report Type: 
  Country: None (occurrence: None)
  Receive Date: 20120402
  Receipt Date: 20110421
  Transmission Date: 20120825
  Serious: No
  Sender: FDA-Public Use
  Company Number: US-ABBOTT-11P-163-0804477-00

PATIENT
  Age: 38 Year
  Sex: Male

DRUGS (2)
  1. TESTOSTERONE [Suspect]
     Dosage: DAILY DOSE:  UNKNOWN
     Route: 062
     Dates: start: 20110301
  2. TESTOSTERONE [Suspect]
     Indication: PRODUCT USED FOR UNKNOWN INDICATION
     Dosage: DAILY DOSE:  UNKNOWN
     Route: 062
     Dates: start: 20100801, end: 20110301

REACTIONS (2)
  - BLOOD TESTOSTERONE DECREASED [None]
  - FATIGUE [None]
